FAERS Safety Report 19594121 (Version 2)
Quarter: 2021Q3

REPORT INFORMATION
  Report Type: Report from Study
  Country: US (occurrence: US)
  Receive Date: 20210722
  Receipt Date: 20210727
  Transmission Date: 20211014
  Serious: Yes (Hospitalization, Other)
  Sender: FDA-Public Use
  Company Number: US-GLAXOSMITHKLINE-US2021AMR052346

PATIENT
  Age: 76 Year
  Sex: Male

DRUGS (1)
  1. BELANTAMAB MAFODOTIN. [Suspect]
     Active Substance: BELANTAMAB MAFODOTIN
     Indication: PLASMA CELL MYELOMA
     Dosage: UNK
     Dates: start: 20210107

REACTIONS (5)
  - Plasma cell myeloma recurrent [Unknown]
  - Keratopathy [Unknown]
  - Visual acuity reduced [Unknown]
  - Plasma cell myeloma [Unknown]
  - Ophthalmological examination abnormal [Unknown]

NARRATIVE: CASE EVENT DATE: 20210218
